FAERS Safety Report 24276064 (Version 3)
Quarter: 2024Q4

REPORT INFORMATION
  Report Type: Report from Study
  Country: CO (occurrence: CO)
  Receive Date: 20240903
  Receipt Date: 20241017
  Transmission Date: 20250114
  Serious: Yes (Other)
  Sender: AMGEN
  Company Number: CO-AMGEN-COLSL2024116676

PATIENT
  Age: 30 Year
  Sex: Female

DRUGS (1)
  1. VECTIBIX [Suspect]
     Active Substance: PANITUMUMAB
     Indication: Colorectal cancer metastatic
     Dosage: 300 MILLIGRAM, Q2WK BIWEEKLY
     Route: 042
     Dates: start: 20240605, end: 20240813

REACTIONS (10)
  - Oral disorder [Not Recovered/Not Resolved]
  - Rash [Not Recovered/Not Resolved]
  - Dry skin [Not Recovered/Not Resolved]
  - Dry eye [Not Recovered/Not Resolved]
  - Skin toxicity [Recovering/Resolving]
  - Headache [Not Recovered/Not Resolved]
  - Chills [Not Recovered/Not Resolved]
  - Nausea [Not Recovered/Not Resolved]
  - Pruritus [Not Recovered/Not Resolved]
  - Asthenia [Not Recovered/Not Resolved]

NARRATIVE: CASE EVENT DATE: 20240101
